FAERS Safety Report 24549908 (Version 2)
Quarter: 2024Q4

REPORT INFORMATION
  Report Type: Spontaneous
  Country: US (occurrence: US)
  Receive Date: 20241025
  Receipt Date: 20241025
  Transmission Date: 20250115
  Serious: No
  Sender: SANDOZ
  Company Number: US-SANDOZ-SDZ2024US089330

PATIENT
  Sex: Female

DRUGS (1)
  1. ALBUTEROL SULFATE [Suspect]
     Active Substance: ALBUTEROL SULFATE
     Indication: Product used for unknown indication
     Dosage: 90 UG
     Route: 065

REACTIONS (7)
  - Device defective [Unknown]
  - Poor quality device used [Unknown]
  - Product delivery mechanism issue [Unknown]
  - Drug dose omission by device [Unknown]
  - Expired device used [Unknown]
  - Product storage error [Unknown]
  - Drug ineffective [Unknown]
